FAERS Safety Report 10522348 (Version 1)
Quarter: 2014Q4

REPORT INFORMATION
  Report Type: Spontaneous
  Country: US (occurrence: None)
  Receive Date: 20141014
  Receipt Date: 20141014
  Transmission Date: 20150528
  Serious: No
  Sender: FDA-Public Use
  Company Number: None

PATIENT
  Age: 31 Year
  Sex: Female

DRUGS (1)
  1. LURASIDONE [Suspect]
     Active Substance: LURASIDONE
     Indication: SCHIZOAFFECTIVE DISORDER
     Dosage: 40 MG, EVERY DAY, PO
     Route: 048
     Dates: start: 20140203, end: 20140418

REACTIONS (1)
  - Hyperprolactinaemia [None]

NARRATIVE: CASE EVENT DATE: 20140327
